FAERS Safety Report 10083618 (Version 1)
Quarter: 2014Q2

REPORT INFORMATION
  Report Type: Spontaneous
  Country: ES (occurrence: None)
  Receive Date: 20140415
  Receipt Date: 20140415
  Transmission Date: 20141212
  Serious: Yes (Hospitalization)
  Sender: FDA-Public Use
  Company Number: IPC201404-000155

PATIENT
  Age: 35 Year
  Sex: Male

DRUGS (4)
  1. ALLOPURINOL [Suspect]
     Indication: HYPERURICAEMIA
  2. L-THYROXINE (L-THYROXINE) (L-THYROXINE) [Concomitant]
  3. HIDROALTESONA (HYDROCORTISONE) (HYDROCORTISONE) [Concomitant]
  4. TESTORENONE (TESTORENONE) (TESTORENONE) [Concomitant]

REACTIONS (1)
  - Drug reaction with eosinophilia and systemic symptoms [None]
